FAERS Safety Report 12143408 (Version 1)
Quarter: 2016Q1

REPORT INFORMATION
  Report Type: Spontaneous
  Country: KR (occurrence: KR)
  Receive Date: 20160304
  Receipt Date: 20160304
  Transmission Date: 20160526
  Serious: Yes (Hospitalization)
  Sender: FDA-Public Use
  Company Number: KR-AMGEN-KORCT2016026061

PATIENT
  Age: 52 Year
  Sex: Female
  Weight: 51 kg

DRUGS (12)
  1. G-LASTA [Suspect]
     Active Substance: PEGFILGRASTIM
     Dosage: 6 MG, 1X/3WEEKS
     Route: 058
     Dates: start: 20150314, end: 20150314
  2. REBAMIPIDE [Concomitant]
     Active Substance: REBAMIPIDE
     Dosage: 10 MG, UNK
     Route: 048
     Dates: start: 20150218
  3. DOCETAXEL. [Concomitant]
     Active Substance: DOCETAXEL
     Dosage: 110 MG, UNK
     Route: 042
     Dates: start: 20150217, end: 20150217
  4. DEXAMETHASONE. [Concomitant]
     Active Substance: DEXAMETHASONE
     Dosage: 3 MG, UNK
     Route: 048
     Dates: start: 20150218, end: 20150221
  5. MACPERAN [Concomitant]
     Dosage: 15 MG, UNK
     Route: 048
     Dates: start: 20150218
  6. EMEND [Concomitant]
     Active Substance: APREPITANT
     Dosage: 80 MG, UNK
     Route: 048
     Dates: start: 20150218, end: 20150218
  7. DOXORUBICIN [Concomitant]
     Active Substance: DOXORUBICIN
     Dosage: 70 MG, UNK
     Route: 042
     Dates: start: 20150217, end: 20150217
  8. DOCETAXEL. [Concomitant]
     Active Substance: DOCETAXEL
     Dosage: 110 MG, UNK
     Route: 042
     Dates: start: 20150313, end: 20150313
  9. CYCLOPHOSPHAMIDE. [Concomitant]
     Active Substance: CYCLOPHOSPHAMIDE
     Dosage: 730 MG, UNK
     Route: 042
     Dates: start: 20150217, end: 20150217
  10. CYCLOPHOSPHAMIDE. [Concomitant]
     Active Substance: CYCLOPHOSPHAMIDE
     Dosage: 730 MG, UNK
     Route: 042
     Dates: start: 20150313, end: 20150313
  11. G-LASTA [Suspect]
     Active Substance: PEGFILGRASTIM
     Indication: FEBRILE NEUTROPENIA
     Dosage: 6 MG, 1X/3WEEKS
     Route: 058
     Dates: start: 20150218, end: 20150218
  12. DOXORUBICIN [Concomitant]
     Active Substance: DOXORUBICIN
     Dosage: 70 MG, UNK
     Route: 042
     Dates: start: 20150313, end: 20150313

REACTIONS (1)
  - Neutropenia [Recovered/Resolved]

NARRATIVE: CASE EVENT DATE: 20150319
